FAERS Safety Report 5664867-1 (Version None)
Quarter: 2008Q1

REPORT INFORMATION
  Report Type: 
  Country: None (occurrence: None)
  Receive Date: 20080314
  Receipt Date: 20071018
  Transmission Date: 20080703
  Serious: Yes (Hospitalization)
  Sender: FDA-Public Use
  Company Number: US-PFIZER INC-2007088510

PATIENT
  Sex: Female
  Weight: 74.8 kg

DRUGS (6)
  1. IRINOTECAN HCL [Suspect]
  2. DARBEPOETIN ALFA [Suspect]
     Indication: ANAEMIA OF MALIGNANT DISEASE
     Dates: start: 20070226, end: 20070410
  3. EPOETIN ALFA [Suspect]
     Indication: ANAEMIA OF MALIGNANT DISEASE
     Dosage: TEXT:500 UG-FREQ:FREQUENCY: 1 IN 3 WEEK
     Dates: start: 20070226, end: 20070410
  4. CETUXIMAB [Suspect]
  5. MORPHINE [Suspect]
  6. ZOFRAN [Concomitant]

REACTIONS (4)
  - ANAEMIA [None]
  - NARCOTIC INTOXICATION [None]
  - NEUTROPENIA [None]
  - PANCYTOPENIA [None]
